FAERS Safety Report 7200441-3 (Version None)
Quarter: 2010Q4

REPORT INFORMATION
  Report Type: 
  Country: None (occurrence: None)
  Receive Date: 20101228
  Receipt Date: 20101221
  Transmission Date: 20110411
  Serious: Yes (Other)
  Sender: FDA-Public Use
  Company Number: CA-MERCK-1012USA03446

PATIENT
  Age: 60 Year
  Sex: Male

DRUGS (10)
  1. JANUVIA [Suspect]
     Route: 048
  2. ADVAIR [Concomitant]
     Route: 065
  3. ASAPHEN [Concomitant]
     Route: 065
  4. AVAPRO [Concomitant]
     Route: 065
  5. CRESTOR [Concomitant]
     Route: 065
  6. DIAMICRON [Concomitant]
     Route: 065
  7. LISINOPRIL [Concomitant]
     Route: 065
  8. METFORMIN [Concomitant]
     Route: 065
  9. SPIRIVA [Concomitant]
     Route: 065
  10. UNIPHYL [Concomitant]
     Route: 065

REACTIONS (4)
  - EXFOLIATIVE RASH [None]
  - OEDEMA PERIPHERAL [None]
  - RASH MACULAR [None]
  - RASH PUSTULAR [None]
